FAERS Safety Report 13618756 (Version 1)
Quarter: 2017Q2

REPORT INFORMATION
  Report Type: Spontaneous
  Country: US (occurrence: US)
  Receive Date: 20170606
  Receipt Date: 20170606
  Transmission Date: 20170830
  Serious: No
  Sender: FDA-Public Use
  Company Number: US-ELI_LILLY_AND_COMPANY-US201706000386

PATIENT
  Age: 68 Year
  Sex: Female

DRUGS (1)
  1. HUMULIN R U-500 [Suspect]
     Active Substance: INSULIN HUMAN
     Indication: PRODUCT USED FOR UNKNOWN INDICATION
     Dosage: 41 U, DAILY
     Route: 058
     Dates: start: 201611

REACTIONS (4)
  - Incorrect dose administered [Unknown]
  - Dysarthria [Unknown]
  - Tremor [Unknown]
  - Malaise [Unknown]
